FAERS Safety Report 4433716-1 (Version None)
Quarter: 2004Q3

REPORT INFORMATION
  Report Type: 
  Country: None (occurrence: None)
  Receive Date: 20040825
  Receipt Date: 20040825
  Transmission Date: 20050211
  Serious: No
  Sender: FDA-Public Use
  Company Number: None

PATIENT
  Age: 80 Year
  Sex: Male
  Weight: 206 kg

DRUGS (1)
  1. PAMIDRONATE 90 MG/10 ML [Suspect]
     Indication: MULTIPLE MYELOMA
     Dosage: 90 MG IV Q MONTH
     Route: 042
     Dates: start: 19980501

REACTIONS (5)
  - JAW DISORDER [None]
  - MULTIPLE MYELOMA [None]
  - OSTEOMYELITIS [None]
  - OSTEONECROSIS [None]
  - SOFT TISSUE INFECTION [None]
